FAERS Safety Report 8610633-4 (Version None)
Quarter: 2012Q3

REPORT INFORMATION
  Report Type: 
  Country: None (occurrence: None)
  Receive Date: 20120808
  Receipt Date: 20120725
  Transmission Date: 20120928
  Serious: Yes (Hospitalization)
  Sender: FDA-Public Use
  Company Number: JPI-P-023377

PATIENT
  Age: 24 Year
  Sex: Male

DRUGS (4)
  1. FLUOXETINE HYDROCHLORIDE [Concomitant]
  2. METHYLPHENIDATE HYDROCHLORIDE [Concomitant]
  3. XYREM [Suspect]
     Indication: NARCOLEPSY
     Dosage: IMK, ORAL
     Route: 048
     Dates: start: 20120401
  4. XYREM [Suspect]
     Indication: SOMNOLENCE
     Dosage: IMK, ORAL
     Route: 048
     Dates: start: 20120401

REACTIONS (6)
  - CONFUSIONAL STATE [None]
  - ASTHENIA [None]
  - CONVULSION [None]
  - HYPERSOMNIA [None]
  - PRODUCT TASTE ABNORMAL [None]
  - INCORRECT PRODUCT STORAGE [None]
